FAERS Safety Report 7107923-3 (Version None)
Quarter: 2010Q4

REPORT INFORMATION
  Report Type: 
  Country: None (occurrence: None)
  Receive Date: 20101117
  Receipt Date: 20101108
  Transmission Date: 20110411
  Serious: Yes (Other)
  Sender: FDA-Public Use
  Company Number: US-ALLERGAN-1014371US

PATIENT
  Sex: Male

DRUGS (1)
  1. ZYMAXID [Suspect]
     Indication: INFECTION

REACTIONS (2)
  - CORNEAL OPACITY [None]
  - KERATITIS [None]
